FAERS Safety Report 24067960 (Version 2)
Quarter: 2024Q3

REPORT INFORMATION
  Report Type: Report from Study
  Country: GB (occurrence: GB)
  Receive Date: 20240710
  Receipt Date: 20240716
  Transmission Date: 20241017
  Serious: Yes (Death, Other)
  Sender: NOVARTIS
  Company Number: GB-002147023-NVSC2023GB094725

PATIENT
  Age: 83 Year
  Sex: Male

DRUGS (5)
  1. PLUVICTO [Suspect]
     Active Substance: LUTETIUM LU-177 VIPIVOTIDE TETRAXETAN
     Indication: Hormone-refractory prostate cancer
     Dosage: UNK
     Route: 042
     Dates: start: 20220113
  2. PLUVICTO [Suspect]
     Active Substance: LUTETIUM LU-177 VIPIVOTIDE TETRAXETAN
     Dosage: 7005 MBQ
     Route: 042
     Dates: start: 20221012
  3. PLUVICTO [Suspect]
     Active Substance: LUTETIUM LU-177 VIPIVOTIDE TETRAXETAN
     Dosage: 7034 MBQ
     Route: 042
     Dates: start: 20221125
  4. PLUVICTO [Suspect]
     Active Substance: LUTETIUM LU-177 VIPIVOTIDE TETRAXETAN
     Dosage: 7120 MBQ
     Route: 042
     Dates: start: 20230113
  5. PLUVICTO [Suspect]
     Active Substance: LUTETIUM LU-177 VIPIVOTIDE TETRAXETAN
     Dosage: 7394 MBQ
     Route: 042
     Dates: start: 20230310

REACTIONS (14)
  - Hormone-refractory prostate cancer [Fatal]
  - Malignant neoplasm progression [Fatal]
  - Anaemia [Recovering/Resolving]
  - Aspartate aminotransferase increased [Unknown]
  - Prostatic specific antigen increased [Unknown]
  - Alanine aminotransferase abnormal [Unknown]
  - Body surface area increased [Unknown]
  - Blood alkaline phosphatase increased [Unknown]
  - Blood creatinine increased [Unknown]
  - Haemoglobin decreased [Unknown]
  - Inappropriate schedule of product administration [Unknown]
  - Blood bilirubin increased [Unknown]
  - Neutrophil count increased [Unknown]
  - Platelet count increased [Unknown]

NARRATIVE: CASE EVENT DATE: 20220925
